FAERS Safety Report 22882782 (Version 2)
Quarter: 2023Q4

REPORT INFORMATION
  Report Type: Report from Study
  Country: FR (occurrence: FR)
  Receive Date: 20230830
  Receipt Date: 20231128
  Transmission Date: 20240109
  Serious: Yes (Hospitalization)
  Sender: FDA-Public Use
  Company Number: FR-002147023-NVSC2023FR187539

PATIENT
  Age: 76 Year
  Sex: Male

DRUGS (3)
  1. PLUVICTO [Suspect]
     Active Substance: LUTETIUM LU-177 VIPIVOTIDE TETRAXETAN
     Indication: Prostate cancer
     Dosage: 7400 MBQ (EVERY 6 WEEKS)
     Route: 042
     Dates: start: 202204, end: 202212
  2. DECAPEPTYL [Concomitant]
     Indication: Prostate cancer
     Dosage: UNK (LINE 1)
     Route: 065
     Dates: end: 201709
  3. DECAPEPTYL [Concomitant]
     Dosage: UNK
     Route: 048
     Dates: start: 201709, end: 202302

REACTIONS (1)
  - Thrombotic microangiopathy [Not Recovered/Not Resolved]

NARRATIVE: CASE EVENT DATE: 20230411
